FAERS Safety Report 9466745 (Version 1)
Quarter: 2013Q3

REPORT INFORMATION
  Report Type: Spontaneous
  Country: FR (occurrence: FR)
  Receive Date: 20130820
  Receipt Date: 20130820
  Transmission Date: 20140515
  Serious: Yes (Death, Life-Threatening, Hospitalization, Other)
  Sender: FDA-Public Use
  Company Number: FR-ELI_LILLY_AND_COMPANY-FR201308005713

PATIENT
  Age: 77 Year
  Sex: Male
  Weight: 66 kg

DRUGS (9)
  1. ALIMTA [Suspect]
     Indication: LUNG ADENOCARCINOMA
     Dosage: UNK
     Route: 042
     Dates: start: 20130531, end: 20130715
  2. CISPLATINE [Concomitant]
     Indication: LUNG ADENOCARCINOMA
     Dosage: UNK
     Dates: start: 20130531, end: 20130624
  3. CARBOPLATIN [Concomitant]
     Indication: LUNG ADENOCARCINOMA
     Dosage: UNK
     Dates: start: 20130715, end: 20130715
  4. DEXAMETHASONE [Concomitant]
     Indication: PREMEDICATION
     Dosage: 4 MG, BID
  5. ACIDE FOLIQUE [Concomitant]
     Indication: PREMEDICATION
     Dosage: 0.4 MG, CYCLE
  6. VITAMINE B12 AGUETTANT [Concomitant]
     Indication: PREMEDICATION
     Dosage: 1 DF, EVERY 9 WEEKS
  7. PREDNISONE [Concomitant]
     Dosage: 30 MG, UNKNOWN
     Route: 048
  8. LEVETIRACETAM [Concomitant]
     Dosage: 500 MG, UNKNOWN
     Route: 048
  9. URBANYL [Concomitant]
     Dosage: 10 MG, UNKNOWN
     Route: 048

REACTIONS (10)
  - Septic shock [Fatal]
  - Bone marrow failure [Fatal]
  - Renal impairment [Fatal]
  - Gastrointestinal toxicity [Unknown]
  - Anaemia [Recovered/Resolved]
  - Neutropenia [Unknown]
  - Thrombocytopenia [Unknown]
  - General physical health deterioration [Unknown]
  - Abdominal pain [Unknown]
  - Off label use [Unknown]
